FAERS Safety Report 23388326 (Version 1)
Quarter: 2024Q1

REPORT INFORMATION
  Report Type: Other
  Country: None (occurrence: IT)
  Receive Date: 20240110
  Receipt Date: 20240110
  Transmission Date: 20240410
  Serious: Yes (Death)
  Sender: FDA-Public Use
  Company Number: IT-CorePharma LLC-2150853

PATIENT
  Age: 56 Year
  Sex: Male
  Weight: 73 kg

DRUGS (5)
  1. AMLODIPINE BESYLATE [Suspect]
     Active Substance: AMLODIPINE BESYLATE
     Indication: Product used for unknown indication
     Route: 065
  2. CARVEDILOL [Interacting]
     Active Substance: CARVEDILOL
     Route: 065
  3. DOXAZOSIN [Interacting]
     Active Substance: DOXAZOSIN MESYLATE
     Route: 065
  4. 7-AMINOCLONAZEPAM [Concomitant]
     Active Substance: 7-AMINOCLONAZEPAM
     Route: 065
  5. LACOSAMIDE [Concomitant]
     Active Substance: LACOSAMIDE
     Route: 065

REACTIONS (10)
  - Brain oedema [Fatal]
  - Pulmonary oedema [Fatal]
  - Aortic arteriosclerosis [Fatal]
  - Myocardial fibrosis [Fatal]
  - Petechiae [Fatal]
  - Toxicity to various agents [Fatal]
  - Drug interaction [Unknown]
  - Stomach content analysis [Fatal]
  - Unresponsive to stimuli [Fatal]
  - Intentional overdose [Unknown]
